FAERS Safety Report 7996214-4 (Version None)
Quarter: 2011Q4

REPORT INFORMATION
  Report Type: 
  Country: None (occurrence: None)
  Receive Date: 20111220
  Receipt Date: 20111215
  Transmission Date: 20120403
  Serious: Yes (Other)
  Sender: FDA-Public Use
  Company Number: US-BAXTER-2011BH039671

PATIENT
  Sex: Male

DRUGS (1)
  1. IMMUNE GLOBULIN INTRAVENOUS (HUMAN) [Suspect]
     Indication: PRODUCT USED FOR UNKNOWN INDICATION
     Route: 042

REACTIONS (1)
  - URINE OUTPUT INCREASED [None]
